FAERS Safety Report 5213796-6 (Version None)
Quarter: 2007Q1

REPORT INFORMATION
  Report Type: 
  Country: None (occurrence: None)
  Receive Date: 20070119
  Receipt Date: 20070108
  Transmission Date: 20070707
  Serious: Yes (Hospitalization)
  Sender: FDA-Public Use
  Company Number: TW-PFIZER INC-2006060527

PATIENT
  Sex: Male
  Weight: 59 kg

DRUGS (4)
  1. SU-011,248 [Suspect]
     Indication: METASTATIC RENAL CELL CARCINOMA
     Route: 048
     Dates: start: 20060425, end: 20060506
  2. PYRIDOSTIGMINE BROMIDE [Concomitant]
     Route: 048
  3. PREDNISOLONE [Concomitant]
     Route: 048
  4. CALCIUM CARBONATE [Concomitant]
     Route: 048

REACTIONS (4)
  - HERPES ZOSTER [None]
  - HYPONATRAEMIA [None]
  - SEPSIS [None]
  - THROMBOCYTOPENIA [None]
